FAERS Safety Report 6824116-5 (Version None)
Quarter: 2010Q3

REPORT INFORMATION
  Report Type: 
  Country: None (occurrence: None)
  Receive Date: 20100708
  Receipt Date: 20061005
  Transmission Date: 20110219
  Serious: No
  Sender: FDA-Public Use
  Company Number: US-PFIZER INC-2006124024

PATIENT
  Sex: Male
  Weight: 92.08 kg

DRUGS (2)
  1. CHANTIX [Suspect]
     Indication: EX-TOBACCO USER
     Dates: start: 20060930
  2. MONTELUKAST [Concomitant]
     Indication: HYPERSENSITIVITY
     Dates: end: 20060101

REACTIONS (3)
  - ABNORMAL DREAMS [None]
  - FATIGUE [None]
  - SLEEP DISORDER [None]
